FAERS Safety Report 19984536 (Version 2)
Quarter: 2021Q4

REPORT INFORMATION
  Report Type: Spontaneous
  Country: US (occurrence: US)
  Receive Date: 20211021
  Receipt Date: 20211028
  Transmission Date: 20220303
  Serious: Yes (Hospitalization, Other)
  Sender: FDA-Public Use
  Company Number: US-TEVA-2021-US-1966933

PATIENT
  Age: 16 Year
  Sex: Female

DRUGS (1)
  1. BUSPIRONE [Suspect]
     Active Substance: BUSPIRONE HYDROCHLORIDE
     Indication: Intentional overdose
     Dosage: 450 MILLIGRAM DAILY;
     Route: 048

REACTIONS (8)
  - Intentional overdose [Unknown]
  - Dizziness [Recovered/Resolved]
  - Nausea [Recovered/Resolved]
  - Somnolence [Recovered/Resolved]
  - Anion gap abnormal [Recovered/Resolved]
  - Blood bicarbonate abnormal [Recovered/Resolved]
  - Blood lactic acid increased [Recovered/Resolved]
  - Intentional self-injury [Recovered/Resolved]
